FAERS Safety Report 18299558 (Version 1)
Quarter: 2020Q3

REPORT INFORMATION
  Report Type: Spontaneous
  Country: JP (occurrence: JP)
  Receive Date: 20200923
  Receipt Date: 20200923
  Transmission Date: 20201103
  Serious: Yes (Hospitalization, Other)
  Sender: FDA-Public Use
  Company Number: JP-GLAXOSMITHKLINE-JP2020JPN188231

PATIENT
  Age: 47 Year
  Sex: Male
  Weight: 95 kg

DRUGS (55)
  1. PREDNISOLONE. [Concomitant]
     Active Substance: PREDNISOLONE
     Dosage: 60 MG, 1D
     Route: 048
     Dates: start: 20180301, end: 20180307
  2. BENLYSTA [Suspect]
     Active Substance: BELIMUMAB
     Dosage: 10 MG/KG
     Route: 041
     Dates: start: 20190209, end: 20190221
  3. PREDNISOLONE. [Concomitant]
     Active Substance: PREDNISOLONE
     Dosage: 25 MG, 1D
     Route: 048
     Dates: start: 20181009, end: 20181011
  4. PREDNISOLONE. [Concomitant]
     Active Substance: PREDNISOLONE
     Dosage: 40 MG, 1D
     Route: 048
     Dates: start: 20180315, end: 20180328
  5. PREDNISOLONE. [Concomitant]
     Active Substance: PREDNISOLONE
     Dosage: 40 MG, 1D
     Route: 048
     Dates: start: 20180403, end: 20180530
  6. VALIXA (VALGANCICLOVIR HYDROCHLORIDE) [Concomitant]
     Dosage: UNK
  7. TENELIA [Concomitant]
     Active Substance: TENELIGLIPTIN
     Dosage: UNK
  8. FEBURIC [Concomitant]
     Active Substance: FEBUXOSTAT
     Dosage: UNK
  9. BENLYSTA [Suspect]
     Active Substance: BELIMUMAB
     Dosage: 10 MG/KG, 1D
     Route: 041
     Dates: start: 20190108, end: 20190108
  10. BENLYSTA [Suspect]
     Active Substance: BELIMUMAB
     Indication: SYSTEMIC LUPUS ERYTHEMATOSUS
     Dosage: 10 MG/KG, Z
     Route: 041
     Dates: start: 20180223, end: 20180323
  11. PREDNISOLONE. [Concomitant]
     Active Substance: PREDNISOLONE
     Dosage: 20 MG, 1D
     Route: 048
     Dates: start: 20180907, end: 20181008
  12. PREDNISOLONE. [Concomitant]
     Active Substance: PREDNISOLONE
     Dosage: 40 MG, 1D
     Route: 048
     Dates: start: 20181012, end: 20190127
  13. BAKTAR [Concomitant]
     Active Substance: SULFAMETHOXAZOLE\TRIMETHOPRIM
     Indication: ANTIFUNGAL PROPHYLAXIS
     Dosage: 1 DF, WE
  14. INSULIN GLARGINE (GENETICAL RECOMBINATION) [Concomitant]
     Active Substance: INSULIN GLARGINE
     Dosage: UNK
  15. BENLYSTA [Suspect]
     Active Substance: BELIMUMAB
     Dosage: 10 MG/KG, Z
     Route: 041
     Dates: start: 20180907, end: 20180907
  16. FUROSEMIDE. [Concomitant]
     Active Substance: FUROSEMIDE
     Indication: SYSTEMIC LUPUS ERYTHEMATOSUS
     Dosage: UNK
     Route: 048
  17. PREDNISOLONE. [Concomitant]
     Active Substance: PREDNISOLONE
     Dosage: 30 MG, 1D
     Route: 048
     Dates: start: 20180531, end: 20180712
  18. PREDNISOLONE. [Concomitant]
     Active Substance: PREDNISOLONE
     Dosage: 40 MG, 1D
     Route: 041
     Dates: start: 20180329, end: 20180329
  19. PREDNISOLONE. [Concomitant]
     Active Substance: PREDNISOLONE
     Dosage: 40 MG, 1D
     Route: 048
     Dates: start: 20190207, end: 20190219
  20. PREDNISOLONE. [Concomitant]
     Active Substance: PREDNISOLONE
     Dosage: 50 MG, 1D
     Route: 048
     Dates: start: 20180308, end: 20180314
  21. PREDNISOLONE. [Concomitant]
     Active Substance: PREDNISOLONE
     Dosage: 60 MG, 1D
     Route: 048
     Dates: start: 20190202, end: 20190206
  22. PREDNISOLONE. [Concomitant]
     Active Substance: PREDNISOLONE
     Dosage: 70 MG, 1D
     Route: 048
     Dates: start: 20180222, end: 20180228
  23. MEROPENEM. [Concomitant]
     Active Substance: MEROPENEM
     Indication: PANCREATITIS ACUTE
     Dosage: 1 G, TID
     Route: 041
     Dates: start: 20180330, end: 20180409
  24. HUMALOG [Concomitant]
     Active Substance: INSULIN LISPRO
     Dosage: UNK
  25. BENLYSTA [Suspect]
     Active Substance: BELIMUMAB
     Dosage: 10 MG/KG
     Route: 041
     Dates: start: 20181106, end: 20181204
  26. BENLYSTA [Suspect]
     Active Substance: BELIMUMAB
     Dosage: 10 MG/KG, Z
     Route: 041
     Dates: start: 20180420
  27. PROGRAF [Concomitant]
     Active Substance: TACROLIMUS
     Indication: SYSTEMIC LUPUS ERYTHEMATOSUS
     Dosage: UNK
     Route: 048
  28. BAKTAR [Concomitant]
     Active Substance: SULFAMETHOXAZOLE\TRIMETHOPRIM
     Indication: PNEUMOCYSTIS JIROVECII PNEUMONIA
  29. PITAVASTATIN CALCIUM [Concomitant]
     Active Substance: PITAVASTATIN CALCIUM
     Dosage: UNK
  30. CARVEDILOL. [Concomitant]
     Active Substance: CARVEDILOL
     Dosage: UNK
  31. SENNOSIDE [Concomitant]
     Active Substance: SENNOSIDES
     Dosage: UNK
  32. BONVIVA (IBANDRONATE SODIUM MONOHYDRATE) [Concomitant]
     Indication: OSTEOPOROSIS PROPHYLAXIS
     Dosage: UNK
  33. POLAPREZINC [Concomitant]
     Active Substance: POLAPREZINC
     Dosage: UNK
  34. PREDNISOLONE. [Concomitant]
     Active Substance: PREDNISOLONE
     Indication: SYSTEMIC LUPUS ERYTHEMATOSUS
     Dosage: UNK
     Route: 048
  35. PLAQUENIL [Concomitant]
     Active Substance: HYDROXYCHLOROQUINE SULFATE
     Indication: SYSTEMIC LUPUS ERYTHEMATOSUS
     Dosage: UNK
     Route: 048
  36. NOVORAPID [Concomitant]
     Active Substance: INSULIN ASPART
     Dosage: UNK
  37. RABEPRAZOLE SODIUM. [Concomitant]
     Active Substance: RABEPRAZOLE SODIUM
     Dosage: UNK
  38. AZELNIDIPINE [Concomitant]
     Active Substance: AZELNIDIPINE
     Dosage: UNK
  39. BAYASPIRIN [Concomitant]
     Active Substance: ASPIRIN
     Dosage: UNK
  40. BENLYSTA [Suspect]
     Active Substance: BELIMUMAB
     Dosage: 800 MG, PER 4 WEEKS
  41. PREDNISOLONE. [Concomitant]
     Active Substance: PREDNISOLONE
     Dosage: 60 MG, 1D
     Route: 041
     Dates: start: 20180330, end: 20180402
  42. BONALON [Concomitant]
     Active Substance: ALENDRONATE SODIUM
     Indication: OSTEOPOROSIS PROPHYLAXIS
     Dosage: UNK
  43. CARDENALIN [Concomitant]
     Active Substance: DOXAZOSIN MESYLATE
     Dosage: UNK
  44. AZILVA [Concomitant]
     Active Substance: AZILSARTAN KAMEDOXOMIL
     Dosage: UNK
  45. AMLODIPINE BESILATE [Concomitant]
     Active Substance: AMLODIPINE BESYLATE
     Dosage: UNK
  46. SPIRONOLACTONE. [Concomitant]
     Active Substance: SPIRONOLACTONE
     Indication: SYSTEMIC LUPUS ERYTHEMATOSUS
     Dosage: UNK
  47. PERSANTINE [Concomitant]
     Active Substance: DIPYRIDAMOLE
     Indication: SYSTEMIC LUPUS ERYTHEMATOSUS
     Dosage: UNK
  48. PREDNISOLONE. [Concomitant]
     Active Substance: PREDNISOLONE
     Dosage: 22.5 MG, 1D
     Route: 048
     Dates: start: 20180810, end: 20180906
  49. PREDNISOLONE. [Concomitant]
     Active Substance: PREDNISOLONE
     Dosage: 25 MG, 1D
     Route: 048
     Dates: start: 20180713, end: 20180809
  50. PREDNISOLONE. [Concomitant]
     Active Substance: PREDNISOLONE
     Dosage: 35 MG, 1D
     Route: 048
     Dates: start: 20190220
  51. CELLCEPT [Concomitant]
     Active Substance: MYCOPHENOLATE MOFETIL\MYCOPHENOLATE MOFETIL HYDROCHLORIDE
     Indication: SYSTEMIC LUPUS ERYTHEMATOSUS
     Dosage: UNK
     Route: 048
  52. MEROPENEM. [Concomitant]
     Active Substance: MEROPENEM
     Indication: PNEUMOCYSTIS JIROVECII PNEUMONIA
     Dosage: UNK
     Route: 041
  53. DAIKENCHUTO [Concomitant]
     Active Substance: HERBALS
     Dosage: UNK
  54. SODIUM PICOSULFATE HYDRATE [Concomitant]
     Active Substance: SODIUM PICOSULFATE
     Dosage: UNK
  55. NOVOLIN R [Concomitant]
     Active Substance: INSULIN HUMAN
     Dosage: UNK

REACTIONS (1)
  - Angina unstable [Recovering/Resolving]

NARRATIVE: CASE EVENT DATE: 202008
